FAERS Safety Report 23632942 (Version 2)
Quarter: 2024Q2

REPORT INFORMATION
  Report Type: Spontaneous
  Country: US (occurrence: US)
  Receive Date: 20240314
  Receipt Date: 20240408
  Transmission Date: 20240716
  Serious: No
  Sender: FDA-Public Use
  Company Number: US-OPELLA-2024OHG007584

PATIENT
  Age: 26 Year
  Sex: Female

DRUGS (10)
  1. ALLEGRA ALLERGY [Suspect]
     Active Substance: FEXOFENADINE HYDROCHLORIDE
     Indication: Urticaria
     Dosage: 720 MG/DAY
     Route: 065
  2. ALLEGRA ALLERGY [Suspect]
     Active Substance: FEXOFENADINE HYDROCHLORIDE
     Indication: Angioedema
  3. OMALIZUMAB [Concomitant]
     Active Substance: OMALIZUMAB
     Indication: Urticaria
     Dosage: 300 MG/14 DAYS (QOW)
     Route: 065
  4. OMALIZUMAB [Concomitant]
     Active Substance: OMALIZUMAB
     Indication: Angioedema
  5. DOXEPIN [Concomitant]
     Active Substance: DOXEPIN
     Indication: Urticaria
     Dosage: 100 MG/DAY
     Route: 065
  6. DOXEPIN [Concomitant]
     Active Substance: DOXEPIN
     Indication: Angioedema
  7. MONTELUKAST [Concomitant]
     Active Substance: MONTELUKAST SODIUM
     Indication: Urticaria
     Route: 065
  8. MONTELUKAST [Concomitant]
     Active Substance: MONTELUKAST SODIUM
     Indication: Angioedema
  9. PREDNISONE [Concomitant]
     Active Substance: PREDNISONE
     Indication: Product used for unknown indication
     Dosage: UNK, INCREASING DOSES
  10. PREDNISONE [Concomitant]
     Active Substance: PREDNISONE
     Dosage: 300 MG, BID

REACTIONS (2)
  - Drug ineffective [Unknown]
  - No adverse event [Unknown]
